FAERS Safety Report 7151096-8 (Version None)
Quarter: 2010Q4

REPORT INFORMATION
  Report Type: 
  Country: None (occurrence: None)
  Receive Date: 20101210
  Receipt Date: 20101201
  Transmission Date: 20110411
  Serious: Yes (Hospitalization)
  Sender: FDA-Public Use
  Company Number: CA-JNJFOC-20101202201

PATIENT
  Sex: Male

DRUGS (3)
  1. REMICADE [Suspect]
     Indication: CROHN'S DISEASE
     Route: 042
  2. REMICADE [Suspect]
     Route: 042
  3. GRAVOL TAB [Concomitant]
     Route: 048

REACTIONS (6)
  - ANXIETY [None]
  - DECREASED APPETITE [None]
  - DIARRHOEA [None]
  - HOSPITALISATION [None]
  - INFUSION RELATED REACTION [None]
  - NAUSEA [None]
